FAERS Safety Report 7679362-8 (Version None)
Quarter: 2011Q3

REPORT INFORMATION
  Report Type: 
  Country: None (occurrence: None)
  Receive Date: 20110812
  Receipt Date: 20110803
  Transmission Date: 20111222
  Serious: Yes (Other)
  Sender: FDA-Public Use
  Company Number: PHHY2011BR70622

PATIENT
  Sex: Male

DRUGS (3)
  1. COPRESTOSEQUE [Concomitant]
     Dosage: UNK UKN, UNK
  2. AMINOFILINA [Suspect]
     Dosage: 0.1 G, UNK
     Route: 048
  3. FORMOTEROL FUMARATE [Suspect]
     Dosage: 12/400 MCG
     Route: 048

REACTIONS (5)
  - TRAUMATIC LUNG INJURY [None]
  - HYPERTENSION [None]
  - NASAL CONGESTION [None]
  - DYSPNOEA [None]
  - FATIGUE [None]
